FAERS Safety Report 23592818 (Version 1)
Quarter: 2024Q1

REPORT INFORMATION
  Report Type: Spontaneous
  Country: AU (occurrence: AU)
  Receive Date: 20240304
  Receipt Date: 20240304
  Transmission Date: 20240409
  Serious: Yes (Death, Other)
  Sender: FDA-Public Use
  Company Number: AU-009507513-2402AUS009593

PATIENT
  Age: 32 Year
  Sex: Female

DRUGS (11)
  1. PEMBROLIZUMAB [Suspect]
     Active Substance: PEMBROLIZUMAB
     Indication: Primary mediastinal large B-cell lymphoma
     Dosage: UNK
     Route: 042
     Dates: start: 20220218, end: 20220316
  2. CYCLOPHOSPHAMIDE [Suspect]
     Active Substance: CYCLOPHOSPHAMIDE
     Indication: Primary mediastinal large B-cell lymphoma
     Dosage: UNK
     Route: 042
     Dates: start: 20210619, end: 20211110
  3. CYTARABINE [Suspect]
     Active Substance: CYTARABINE
     Indication: Primary mediastinal large B-cell lymphoma
     Dosage: UNK
     Route: 042
     Dates: start: 20220101, end: 20220121
  4. DOXORUBICIN HYDROCHLORIDE [Suspect]
     Active Substance: DOXORUBICIN HYDROCHLORIDE
     Indication: Primary mediastinal large B-cell lymphoma
     Dosage: UNK
     Route: 042
     Dates: start: 20210619, end: 20211110
  5. ETOPOSIDE [Suspect]
     Active Substance: ETOPOSIDE
     Indication: Primary mediastinal large B-cell lymphoma
     Dosage: UNK
     Route: 042
     Dates: start: 20210619, end: 20211110
  6. ETOPOSIDE [Suspect]
     Active Substance: ETOPOSIDE
     Dosage: UNK
     Route: 042
     Dates: start: 20220101, end: 20220121
  7. IFOSFAMIDE [Suspect]
     Active Substance: IFOSFAMIDE
     Indication: Primary mediastinal large B-cell lymphoma
     Dosage: UNK
     Route: 042
     Dates: start: 20220101, end: 20220121
  8. PREDNISONE [Suspect]
     Active Substance: PREDNISONE
     Indication: Primary mediastinal large B-cell lymphoma
     Dosage: UNK
     Route: 042
     Dates: start: 20210619, end: 20211110
  9. RITUXIMAB [Suspect]
     Active Substance: RITUXIMAB
     Indication: Primary mediastinal large B-cell lymphoma
     Dosage: UNK
     Route: 042
     Dates: start: 20210719, end: 20211110
  10. RITUXIMAB [Suspect]
     Active Substance: RITUXIMAB
     Dosage: UNK
     Route: 042
     Dates: start: 20220101, end: 20220121
  11. VINCRISTINE SULFATE [Suspect]
     Active Substance: VINCRISTINE SULFATE
     Indication: Primary mediastinal large B-cell lymphoma
     Dosage: UNK
     Route: 042
     Dates: start: 20210619, end: 20211110

REACTIONS (7)
  - Adverse event [Fatal]
  - Disease progression [Recovering/Resolving]
  - Cardiac disorder [Recovering/Resolving]
  - Cough [Unknown]
  - Dyspnoea exertional [Unknown]
  - Radiation oesophagitis [Unknown]
  - SARS-CoV-2 test positive [Recovering/Resolving]

NARRATIVE: CASE EVENT DATE: 20220621
